FAERS Safety Report 11820892 (Version 1)
Quarter: 2015Q4

REPORT INFORMATION
  Report Type: Spontaneous
  Country: US (occurrence: US)
  Receive Date: 20151210
  Receipt Date: 20151210
  Transmission Date: 20160305
  Serious: No
  Sender: FDA-Public Use
  Company Number: US-JNJFOC-20150721002

PATIENT
  Age: 64 Year
  Sex: Male

DRUGS (7)
  1. FLUTICASONE PROPIONATE. [Concomitant]
     Active Substance: FLUTICASONE PROPIONATE
  2. IMBRUVICA [Suspect]
     Active Substance: IBRUTINIB
     Indication: CHRONIC LYMPHOCYTIC LEUKAEMIA
     Route: 048
     Dates: start: 20150307
  3. NARDIL [Concomitant]
     Active Substance: PHENELZINE SULFATE
  4. XANAX [Concomitant]
     Active Substance: ALPRAZOLAM
  5. ACYCLOVIR. [Concomitant]
     Active Substance: ACYCLOVIR
  6. BACTRIM DS [Concomitant]
     Active Substance: SULFAMETHOXAZOLE\TRIMETHOPRIM
  7. ONDANSETRON [Concomitant]
     Active Substance: ONDANSETRON

REACTIONS (3)
  - Pain of skin [Unknown]
  - Rash erythematous [Unknown]
  - Stomatitis [Unknown]

NARRATIVE: CASE EVENT DATE: 201506
